FAERS Safety Report 7762097-0 (Version None)
Quarter: 2011Q3

REPORT INFORMATION
  Report Type: 
  Country: None (occurrence: None)
  Receive Date: 20110920
  Receipt Date: 20110920
  Transmission Date: 20111222
  Serious: Yes (Other)
  Sender: FDA-Public Use
  Company Number: None

PATIENT
  Age: 40 Year
  Sex: Female
  Weight: 56.699 kg

DRUGS (1)
  1. LEXAPRO [Suspect]
     Indication: DEPRESSION
     Dosage: 10MG OR 5MG
     Route: 048
     Dates: start: 20050405, end: 20110901

REACTIONS (4)
  - HYPERTENSION [None]
  - BLOOD GLUCOSE INCREASED [None]
  - DEPRESSION [None]
  - ANXIETY [None]
